FAERS Safety Report 8775144 (Version 1)
Quarter: 2012Q4

REPORT INFORMATION
  Report Type: Report from Study
  Country: US (occurrence: US)
  Receive Date: 20120910
  Receipt Date: 20120910
  Transmission Date: 20130627
  Serious: Yes (Hospitalization, Other)
  Sender: FDA-Public Use
  Company Number: US-US-EMD SERONO, INC.-7158910

PATIENT
  Sex: Female

DRUGS (2)
  1. REBIF [Suspect]
     Indication: PRODUCT USED FOR UNKNOWN INDICATION
     Route: 058
     Dates: start: 20120301
  2. UNSPECIFIED MEDICATIONS [Concomitant]
     Indication: PRODUCT USED FOR UNKNOWN INDICATION

REACTIONS (9)
  - Dehydration [Unknown]
  - Dysphagia [Recovered/Resolved]
  - Weight decreased [Unknown]
  - Head injury [Recovering/Resolving]
  - Rib fracture [Recovering/Resolving]
  - Face injury [Recovering/Resolving]
  - Dry mouth [Unknown]
  - Fall [Unknown]
  - Influenza like illness [Recovered/Resolved]
